FAERS Safety Report 12178108 (Version 2)
Quarter: 2016Q2

REPORT INFORMATION
  Report Type: Spontaneous
  Country: US (occurrence: US)
  Receive Date: 20160314
  Receipt Date: 20160607
  Transmission Date: 20160815
  Serious: No
  Sender: FDA-Public Use
  Company Number: US-SA-2016SA039277

PATIENT
  Age: 72 Year
  Sex: Male

DRUGS (6)
  1. CORICIDIN [Concomitant]
     Active Substance: ACETAMINOPHEN\CHLORPHENIRAMINE MALEATE
     Dosage: CORICIDIN HBP
  2. TOUJEO [Suspect]
     Active Substance: INSULIN GLARGINE
     Indication: TYPE 1 DIABETES MELLITUS
     Dosage: DOSE:30 UNIT(S)
     Route: 065
     Dates: start: 2015
  3. LANTUS [Concomitant]
     Active Substance: INSULIN GLARGINE
  4. SOLOSTAR [Concomitant]
     Active Substance: DEVICE
  5. TOUJEO [Suspect]
     Active Substance: INSULIN GLARGINE
     Indication: TYPE 1 DIABETES MELLITUS
     Dosage: DOSE:30 UNIT(S)
     Route: 065
     Dates: start: 2015
  6. HUMALOG [Concomitant]
     Active Substance: INSULIN LISPRO

REACTIONS (4)
  - Nasopharyngitis [Unknown]
  - Blood glucose increased [Unknown]
  - Blood glucose decreased [Unknown]
  - Hyperhidrosis [Unknown]

NARRATIVE: CASE EVENT DATE: 20160223
